FAERS Safety Report 8769629 (Version 1)
Quarter: 2012Q4

REPORT INFORMATION
  Report Type: 
  Country: US (occurrence: US)
  Receive Date: 20120905
  Receipt Date: 20120905
  Transmission Date: 20130627
  Serious: Yes (Hospitalization)
  Sender: FDA-Public Use
  Company Number: US-B.I. PHARMACEUTICALS,INC./RIDGEFIELD-2012-BP-21242BP

PATIENT
  Sex: Female

DRUGS (7)
  1. PRADAXA [Suspect]
     Indication: ATRIAL FIBRILLATION
     Dosage: 300 mg
     Route: 048
     Dates: start: 201102
  2. METOPROLOL [Concomitant]
     Indication: HYPERTENSION
     Dosage: 200 mg
     Route: 048
     Dates: start: 201204
  3. METOPROLOL [Concomitant]
     Indication: HEART RATE
  4. XANAX [Concomitant]
     Dosage: 0.25 mg
     Route: 048
  5. DIPHENHYDRAMINE [Concomitant]
     Indication: SLEEP DISORDER
     Route: 048
  6. CARDIZEM CD [Concomitant]
     Indication: CARDIAC DISORDER
     Dosage: 180 mg
     Route: 048
  7. LIPITOR [Concomitant]
     Indication: BLOOD CHOLESTEROL INCREASED
     Dosage: 10 mg
     Route: 048

REACTIONS (6)
  - Aortic valve incompetence [Recovered/Resolved]
  - Mitral valve incompetence [Recovered/Resolved]
  - Tricuspid valve incompetence [Recovered/Resolved]
  - Coronary artery occlusion [Recovered/Resolved]
  - Cardiac septal defect [Recovered/Resolved]
  - Alopecia [Recovered/Resolved]
